FAERS Safety Report 4965555-7 (Version None)
Quarter: 2006Q1

REPORT INFORMATION
  Report Type: 
  Country: None (occurrence: None)
  Receive Date: 20060201
  Receipt Date: 20051016
  Transmission Date: 20060701
  Serious: No
  Sender: FDA-Public Use
  Company Number: 2005PV003218

PATIENT
  Age: 44 Year
  Sex: Female
  Weight: 107.9561 kg

DRUGS (4)
  1. BYETTA [Suspect]
     Indication: DIABETES MELLITUS NON-INSULIN-DEPENDENT
     Dosage: 10 MCG; SC
     Route: 058
     Dates: start: 20050101, end: 20050901
  2. AVANDIA [Concomitant]
  3. METFORMIN [Concomitant]
  4. CAMILA [Concomitant]

REACTIONS (4)
  - ABDOMINAL PAIN [None]
  - BLOOD URINE [None]
  - NAUSEA [None]
  - RETCHING [None]
